FAERS Safety Report 4628370-X (Version None)
Quarter: 2005Q2

REPORT INFORMATION
  Report Type: 
  Country: None (occurrence: None)
  Receive Date: 20050401
  Receipt Date: 20050321
  Transmission Date: 20051028
  Serious: Yes (Death, Other)
  Sender: FDA-Public Use
  Company Number: USA-2005-0019422

PATIENT
  Age: 82 Year
  Sex: Male

DRUGS (4)
  1. SPECTRACEF [Suspect]
     Indication: PNEUMONIA
     Dosage: 400 MG, BID, ORAL
     Route: 048
     Dates: start: 20050216
  2. ALBUTEROL [Concomitant]
  3. CATAPRES [Concomitant]
  4. LIPITOR [Concomitant]

REACTIONS (13)
  - ABDOMINAL TENDERNESS [None]
  - BODY TEMPERATURE DECREASED [None]
  - CLOSTRIDIUM COLITIS [None]
  - COLD SWEAT [None]
  - CYANOSIS [None]
  - DIALYSIS [None]
  - FEELING COLD [None]
  - GASTROINTESTINAL DISORDER [None]
  - HYPERHIDROSIS [None]
  - HYPOTENSION [None]
  - RENAL FAILURE [None]
  - RESPIRATORY FAILURE [None]
  - SEPTIC SHOCK [None]
